FAERS Safety Report 13917414 (Version 5)
Quarter: 2021Q3

REPORT INFORMATION
  Report Type: Spontaneous
  Country: BR (occurrence: BR)
  Receive Date: 20170829
  Receipt Date: 20210802
  Transmission Date: 20211014
  Serious: Yes (Other)
  Sender: FDA-Public Use
  Company Number: BR-GLAXOSMITHKLINE-BR2016GSK097392

PATIENT
  Age: 47 Year
  Sex: Female
  Weight: 67 kg

DRUGS (4)
  1. BENLYSTA [Suspect]
     Active Substance: BELIMUMAB
     Indication: SYSTEMIC LUPUS ERYTHEMATOSUS
     Dosage: UNK(120 MG )
     Route: 042
     Dates: start: 20141201
  2. INFLUENZA VACCINE UNSPECIFIED 2016?2017 SEASON [Concomitant]
     Indication: PROPHYLAXIS
     Dates: start: 20170418
  3. REUQUINOL (HYDROXYCHLOROQUINE SULFATE) [Concomitant]
     Active Substance: HYDROXYCHLOROQUINE SULFATE
     Indication: PRODUCT USED FOR UNKNOWN INDICATION
     Dosage: UNK
  4. CLOPIDOGREL BISULFATE. [Concomitant]
     Active Substance: CLOPIDOGREL BISULFATE
     Indication: PRODUCT USED FOR UNKNOWN INDICATION
     Dosage: UNK

REACTIONS (9)
  - Aneurysm [Unknown]
  - Oropharyngeal pain [Recovered/Resolved]
  - Sinusitis [Recovered/Resolved]
  - Head discomfort [Unknown]
  - Headache [Unknown]
  - Rhinitis [Recovered/Resolved]
  - Nasopharyngitis [Recovered/Resolved]
  - Circumstance or information capable of leading to medication error [Recovered/Resolved]
  - Inappropriate schedule of product administration [Recovered/Resolved]

NARRATIVE: CASE EVENT DATE: 20170203
